FAERS Safety Report 10626440 (Version 1)
Quarter: 2014Q4

REPORT INFORMATION
  Report Type: Spontaneous
  Country: SE (occurrence: SE)
  Receive Date: 20141204
  Receipt Date: 20141204
  Transmission Date: 20150529
  Serious: Yes (Hospitalization)
  Sender: FDA-Public Use
  Company Number: SE-BRISTOL-MYERS SQUIBB COMPANY-21650155

PATIENT
  Age: 74 Year
  Sex: Female

DRUGS (2)
  1. CARBOPLATIN. [Suspect]
     Active Substance: CARBOPLATIN
     Route: 042
     Dates: start: 20140922, end: 20140922
  2. VEPESID [Suspect]
     Active Substance: ETOPOSIDE
     Route: 048
     Dates: start: 20140922, end: 20140926

REACTIONS (5)
  - General physical health deterioration [Recovering/Resolving]
  - Neutropenia [Recovering/Resolving]
  - Proctalgia [Recovering/Resolving]
  - Stomatitis [Recovering/Resolving]
  - Diarrhoea [Recovering/Resolving]

NARRATIVE: CASE EVENT DATE: 201409
